FAERS Safety Report 12280773 (Version 1)
Quarter: 2016Q2

REPORT INFORMATION
  Report Type: Spontaneous
  Country: US (occurrence: US)
  Receive Date: 20160419
  Receipt Date: 20160419
  Transmission Date: 20160815
  Serious: Yes (Other)
  Sender: FDA-Public Use
  Company Number: US-AUROBINDO-AUR-APL-2016-04601

PATIENT
  Age: 45 Year
  Sex: Male

DRUGS (1)
  1. BUPIVACAINE HYDROCHLORIDE. [Suspect]
     Active Substance: BUPIVACAINE HYDROCHLORIDE
     Indication: PAIN
     Dosage: 20 CC OF 0.5%
     Route: 065

REACTIONS (3)
  - Flushing [Recovered/Resolved]
  - Harlequin syndrome [Recovered/Resolved]
  - Hyperhidrosis [Recovered/Resolved]
